FAERS Safety Report 22274401 (Version 3)
Quarter: 2023Q2

REPORT INFORMATION
  Report Type: Spontaneous
  Country: GB (occurrence: GB)
  Receive Date: 20230502
  Receipt Date: 20230614
  Transmission Date: 20230722
  Serious: Yes (Hospitalization)
  Sender: FDA-Public Use
  Company Number: GB-VERTEX PHARMACEUTICALS-2023-003710

PATIENT
  Age: 10 Year
  Sex: Male
  Weight: 32 kg

DRUGS (11)
  1. ELEXACAFTOR\IVACAFTOR\TEZACAFTOR [Suspect]
     Active Substance: ELEXACAFTOR\IVACAFTOR\TEZACAFTOR
     Indication: Cystic fibrosis
     Dosage: 2 TABS IN MORNING (75MG IVA/ 50MG TEZA/ 100MG ELEXA)
     Route: 048
     Dates: start: 20220301, end: 202301
  2. KALYDECO [Suspect]
     Active Substance: IVACAFTOR
     Indication: Cystic fibrosis
     Dosage: 1 TAB AT NIGHT
     Route: 048
     Dates: start: 20220301
  3. POLYETHYLENE GLYCOL 3350\POTASSIUM CHLORIDE\SODIUM BICARBONATE\SODIUM [Concomitant]
     Active Substance: POLYETHYLENE GLYCOL 3350\POTASSIUM CHLORIDE\SODIUM BICARBONATE\SODIUM CHLORIDE
     Indication: Cystic fibrosis gastrointestinal disease
     Dosage: 2 SACHETS ONCE DAILY
  4. OMEPRAZOLE [Concomitant]
     Active Substance: OMEPRAZOLE
     Indication: Cystic fibrosis lung
     Dosage: 10 MILLIGRAM, BID
  5. ALBUTEROL [Concomitant]
     Active Substance: ALBUTEROL
     Indication: Cystic fibrosis gastrointestinal disease
     Dosage: 2 PUFFS AS NEEDED
  6. ACETYLCYSTEINE [Concomitant]
     Active Substance: ACETYLCYSTEINE
     Dosage: TDS
  7. CREON [Concomitant]
     Active Substance: PANCRELIPASE AMYLASE\PANCRELIPASE LIPASE\PANCRELIPASE PROTEASE
     Indication: Cystic fibrosis pancreatic
     Dosage: 10000 3 WITH MEAL AND 2 WITH SNACKS
  8. FLUCLOXACILLIN [Concomitant]
     Active Substance: FLUCLOXACILLIN
     Indication: Cystic fibrosis gastrointestinal disease
     Dosage: SACHET TWICE DAILY
  9. SENNA [Concomitant]
     Active Substance: SENNA LEAF\SENNOSIDES\SENNOSIDES A AND B
  10. DEOXYRIBONUCLEASE, NATURAL [Concomitant]
     Indication: Cystic fibrosis respiratory infection suppression
  11. BECLOMETHASONE [Concomitant]
     Active Substance: BECLOMETHASONE

REACTIONS (5)
  - Idiopathic intracranial hypertension [Recovering/Resolving]
  - Lower respiratory tract infection [Not Recovered/Not Resolved]
  - Vitamin A increased [Not Recovered/Not Resolved]
  - Distal intestinal obstruction syndrome [Unknown]
  - Gastrointestinal disorder [Unknown]

NARRATIVE: CASE EVENT DATE: 20221201
